FAERS Safety Report 6590304-9 (Version None)
Quarter: 2010Q1

REPORT INFORMATION
  Report Type: 
  Country: None (occurrence: None)
  Receive Date: 20100219
  Receipt Date: 20100125
  Transmission Date: 20100710
  Serious: Yes (Hospitalization, Other)
  Sender: FDA-Public Use
  Company Number: PHHY2010BR04516

PATIENT
  Sex: Female
  Weight: 78 kg

DRUGS (2)
  1. DIOVAN HCT [Suspect]
     Indication: HYPERTENSION
     Dosage: 1 TABLET (160/12.5 MG) A DAY
     Route: 048
  2. OSCAL D [Concomitant]
     Indication: OSTEOPOROSIS PROPHYLAXIS
     Dosage: 1 TABLET A DAY
     Route: 048

REACTIONS (4)
  - HEADACHE [None]
  - KNEE ARTHROPLASTY [None]
  - LIMB DEFORMITY [None]
  - OSTEOARTHRITIS [None]
